FAERS Safety Report 20064421 (Version 1)
Quarter: 2021Q4

REPORT INFORMATION
  Report Type: Spontaneous
  Country: US (occurrence: US)
  Receive Date: 20211112
  Receipt Date: 20211112
  Transmission Date: 20220303
  Serious: No
  Sender: FDA-Public Use
  Company Number: US-JNJFOC-20211113860

PATIENT
  Age: 44 Year
  Sex: Female
  Weight: 73.548 kg

DRUGS (8)
  1. PONVORY [Suspect]
     Active Substance: PONESIMOD
     Indication: Multiple sclerosis
     Route: 065
     Dates: start: 20211005
  2. BACLOFEN [Concomitant]
     Active Substance: BACLOFEN
  3. VYVANSE [Concomitant]
     Active Substance: LISDEXAMFETAMINE DIMESYLATE
  4. TRINTELLIX [Concomitant]
     Active Substance: VORTIOXETINE HYDROBROMIDE
  5. NEXIUM [Concomitant]
     Active Substance: ESOMEPRAZOLE MAGNESIUM
  6. IRON [Concomitant]
     Active Substance: IRON
  7. AZELASTINE HYDROCHLORIDE\FLUTICASONE PROPIONATE [Concomitant]
     Active Substance: AZELASTINE HYDROCHLORIDE\FLUTICASONE PROPIONATE
  8. VITAMINS NOS [Concomitant]
     Active Substance: VITAMINS

REACTIONS (9)
  - Skin discolouration [Unknown]
  - Hiccups [Not Recovered/Not Resolved]
  - Peripheral coldness [Unknown]
  - Cardiovascular disorder [Unknown]
  - Dry eye [Unknown]
  - Muscle spasms [Unknown]
  - Muscle spasms [Unknown]
  - Skin disorder [Not Recovered/Not Resolved]
  - Birth mark [Unknown]

NARRATIVE: CASE EVENT DATE: 20211001
